FAERS Safety Report 4997131-4 (Version None)
Quarter: 2006Q2

REPORT INFORMATION
  Report Type: 
  Country: None (occurrence: None)
  Receive Date: 20060508
  Receipt Date: 20060508
  Transmission Date: 20061013
  Serious: Yes (Hospitalization)
  Sender: FDA-Public Use
  Company Number: None

PATIENT
  Age: 75 Year
  Sex: Female
  Weight: 66.2252 kg

DRUGS (1)
  1. VFEND [Suspect]
     Indication: CANDIDIASIS
     Dosage: 200MG   BID   PO
     Route: 048
     Dates: start: 20060420, end: 20060502

REACTIONS (3)
  - BLOOD POTASSIUM INCREASED [None]
  - DRUG TOXICITY [None]
  - HEPATIC ENZYME INCREASED [None]
